FAERS Safety Report 6245742-0 (Version None)
Quarter: 2009Q2

REPORT INFORMATION
  Report Type: 
  Country: None (occurrence: None)
  Receive Date: 20090625
  Receipt Date: 20090617
  Transmission Date: 20091009
  Serious: Yes (Hospitalization, Disabling)
  Sender: FDA-Public Use
  Company Number: US-MERCK-0810USA03088

PATIENT
  Age: 68 Year
  Sex: Female
  Weight: 77 kg

DRUGS (6)
  1. FOSAMAX [Suspect]
     Indication: OSTEOPENIA
     Route: 048
     Dates: start: 19970601, end: 20070601
  2. FOSAMAX [Suspect]
     Route: 048
     Dates: start: 19970601, end: 20070601
  3. FOSAMAX [Suspect]
     Indication: OSTEOPOROSIS
     Route: 048
     Dates: start: 19970601, end: 20070601
  4. FOSAMAX [Suspect]
     Route: 048
     Dates: start: 19970601, end: 20070601
  5. SYNTHROID [Concomitant]
     Indication: HYPOTHYROIDISM
     Route: 065
     Dates: start: 19600101
  6. [THERAPY UNSPECIFIED] [Concomitant]
     Indication: BLOOD CHOLESTEROL INCREASED
     Route: 065
     Dates: start: 19960101

REACTIONS (16)
  - BASAL CELL CARCINOMA [None]
  - CLOSTRIDIUM DIFFICILE COLITIS [None]
  - DIARRHOEA [None]
  - DIVERTICULUM [None]
  - HYDROMETRA [None]
  - IMPAIRED HEALING [None]
  - JAW DISORDER [None]
  - JAW FRACTURE [None]
  - ODONTOGENIC CYST [None]
  - OSTEONECROSIS [None]
  - PAIN IN JAW [None]
  - PERITONEAL ADHESIONS [None]
  - PYREXIA [None]
  - UTERINE DISORDER [None]
  - UTERINE LEIOMYOMA [None]
  - UTERINE POLYP [None]
